FAERS Safety Report 7528672-3 (Version None)
Quarter: 2011Q2

REPORT INFORMATION
  Report Type: 
  Country: None (occurrence: None)
  Receive Date: 20110607
  Receipt Date: 20041021
  Transmission Date: 20111010
  Serious: Yes (Death)
  Sender: FDA-Public Use
  Company Number: PHHO2004CA13788

PATIENT
  Sex: Female

DRUGS (12)
  1. DDAVP [Concomitant]
  2. NEURONTIN [Concomitant]
  3. ATIVAN [Concomitant]
  4. CLOZARIL [Suspect]
     Indication: SCHIZOAFFECTIVE DISORDER
     Dosage: UNK
     Dates: start: 20020417
  5. CELEXA [Concomitant]
  6. BENZODIAZEPINES [Suspect]
  7. TETRACYCLINE [Concomitant]
  8. ZYPREXA ZYDIS [Concomitant]
  9. XANAX [Concomitant]
  10. EFFEXOR [Concomitant]
  11. CODEINE SULFATE [Suspect]
  12. IMOVANE [Concomitant]

REACTIONS (1)
  - DEATH [None]
